FAERS Safety Report 15589909 (Version 2)
Quarter: 2025Q3

REPORT INFORMATION
  Report Type: Spontaneous
  Country: UG (occurrence: UG)
  Receive Date: 20181106
  Receipt Date: 20250717
  Transmission Date: 20251021
  Serious: Yes (Death, Hospitalization)
  Sender: AUROBINDO
  Company Number: UG-MYLANLABS-2018M1082075

PATIENT
  Age: 45 Year
  Sex: Male

DRUGS (6)
  1. LAMIVUDINE [Suspect]
     Active Substance: LAMIVUDINE
     Indication: HIV infection
     Route: 065
  2. EFAVIRENZ [Suspect]
     Active Substance: EFAVIRENZ
     Indication: HIV infection
     Route: 065
  3. TENOFOVIR DISOPROXIL FUMARATE [Suspect]
     Active Substance: TENOFOVIR DISOPROXIL FUMARATE
     Indication: HIV infection
     Route: 065
  4. FLUCONAZOLE [Suspect]
     Active Substance: FLUCONAZOLE
     Indication: Cryptococcosis
     Route: 065
  5. CIPROFLOXACIN [Concomitant]
     Active Substance: CIPROFLOXACIN
     Indication: Large intestine infection
     Route: 065
  6. METRONIDAZOLE [Concomitant]
     Active Substance: METRONIDAZOLE
     Indication: Large intestine infection
     Route: 065

REACTIONS (8)
  - Cryptococcosis [Fatal]
  - Condition aggravated [Fatal]
  - Immune reconstitution inflammatory syndrome [Fatal]
  - Unmasking of previously unidentified disease [Fatal]
  - Loss of consciousness [Fatal]
  - Generalised tonic-clonic seizure [Fatal]
  - Hypotension [Fatal]
  - Hypoxia [Fatal]
